FAERS Safety Report 4479594-6 (Version None)
Quarter: 2004Q4

REPORT INFORMATION
  Report Type: 
  Country: None (occurrence: None)
  Receive Date: 20041018
  Receipt Date: 20041004
  Transmission Date: 20050328
  Serious: Yes (Hospitalization)
  Sender: FDA-Public Use
  Company Number: 2004CG01971

PATIENT
  Age: 84 Year
  Sex: Male

DRUGS (11)
  1. CASODEX [Suspect]
     Indication: PROSTATE CANCER
     Dates: start: 20030801
  2. DECAPEPTYL [Suspect]
     Dates: end: 20040620
  3. SKENAN [Suspect]
     Dosage: 60 MG QD
     Dates: start: 20040823
  4. SINTROM [Concomitant]
  5. RENITEC [Concomitant]
  6. FUROSEMIDE [Concomitant]
  7. ISOPTIN [Concomitant]
  8. DIGOXIN [Concomitant]
  9. HYPERIUM [Concomitant]
  10. TORENTAL [Concomitant]
  11. FENOFIBRATE [Concomitant]

REACTIONS (3)
  - DEEP VEIN THROMBOSIS [None]
  - INTERNATIONAL NORMALISED RATIO DECREASED [None]
  - PROSTATIC SPECIFIC ANTIGEN INCREASED [None]
